FAERS Safety Report 17921045 (Version 1)
Quarter: 2020Q2

REPORT INFORMATION
  Report Type: Report from Study
  Country: US (occurrence: US)
  Receive Date: 20200622
  Receipt Date: 20200622
  Transmission Date: 20200714
  Serious: Yes (Other)
  Sender: FDA-Public Use
  Company Number: US-PFIZER INC-2020228125

PATIENT
  Age: 56 Year
  Sex: Male
  Weight: 118.1 kg

DRUGS (21)
  1. LABETALOL [Concomitant]
     Active Substance: LABETALOL\LABETALOL HYDROCHLORIDE
     Dosage: 200 MG, 2X/DAY
     Route: 048
  2. LORAZEPAM. [Concomitant]
     Active Substance: LORAZEPAM
     Indication: ANXIETY
     Dosage: UNK, 0.5-1.0 MG QHS AS NEEDED
     Route: 048
  3. BUDESONIDE. [Concomitant]
     Active Substance: BUDESONIDE
     Dosage: 3 MG, 2X/DAY, DELAYED RELEASE CAPSULE
     Route: 048
  4. LETERMOVIR [Concomitant]
     Active Substance: LETERMOVIR
     Dosage: 240 MG, DAILY
     Route: 048
  5. PANTOPRAZOLE [Concomitant]
     Active Substance: PANTOPRAZOLE
     Dosage: 40 MG, DELAYED RELEASE TABLET, DAILY, EMPTY STOMACH
     Route: 048
  6. POTASSIUM CHLORIDE. [Concomitant]
     Active Substance: POTASSIUM CHLORIDE
     Dosage: 20 MEQ, 3X/DAY, EXTENDED RELEASE
     Route: 048
  7. PREDNISONE. [Concomitant]
     Active Substance: PREDNISONE
     Dosage: 50 MG, TAKE DAILY DOSE ACCORDING TAPER SCHEDULE PROVIDED. TAPER TO START 28MAR2020
     Route: 048
  8. ATOVAQUONE. [Concomitant]
     Active Substance: ATOVAQUONE
     Dosage: 1500 MG, DAILY, 750 MG/5 ML ORAL SUSPENSION
     Route: 048
  9. GABAPENTIN. [Concomitant]
     Active Substance: GABAPENTIN
     Dosage: UNK, 2X/DAY (1 CAP PO EVERY MORNING; 2 CAPS PO EVERY EVENING BEFORE BED)
     Route: 048
  10. FLUCONAZOLE. [Concomitant]
     Active Substance: FLUCONAZOLE
     Dosage: 400 MG, DAILY
     Route: 048
  11. PREDNISONE. [Concomitant]
     Active Substance: PREDNISONE
     Dosage: 50 MG, TAKE DAILY DOSE ACCORDING TAPER SCHEDULE PROVIDED. TAPER TO START ON 28MAR2020
     Route: 048
  12. SIROLIMUS. [Concomitant]
     Active Substance: SIROLIMUS
     Dosage: 1 MG, DAILY
     Route: 048
  13. VALACYCLOVIR [Concomitant]
     Active Substance: VALACYCLOVIR HYDROCHLORIDE
     Dosage: 500 MG, 2X/DAY
     Route: 048
  14. AMLODIPINE [Concomitant]
     Active Substance: AMLODIPINE BESYLATE
     Dosage: 10 MG, DAILY
     Route: 048
  15. CYCLOSPORINE. [Concomitant]
     Active Substance: CYCLOSPORINE
     Dosage: 175 MG, 2X/DAY (EVERY 12 HOURS), MODIFIED 100 MG ORAL CAPSULE
     Route: 048
  16. FOLIC ACID. [Concomitant]
     Active Substance: FOLIC ACID
     Dosage: 1 MG, 2X/DAY
     Route: 048
  17. URSODIOL. [Concomitant]
     Active Substance: URSODIOL
     Dosage: 500 MG, 2X/DAY
     Route: 048
  18. INOTUZUMAB OZOGAMICIN [Suspect]
     Active Substance: INOTUZUMAB OZOGAMICIN
     Indication: B-CELL TYPE ACUTE LEUKAEMIA
     Dosage: DOSE LEVEL 1, 0.9 MG/VIAL POWDER FOR SOLUTION FOR INJECTION
     Route: 042
     Dates: start: 20191115, end: 20191226
  19. PREDNISONE. [Concomitant]
     Active Substance: PREDNISONE
     Dosage: TAKE DAILY DOSE ACCORDING TAPER SCHEDULE PROVIDED. TAPER TO START ON 28MAR2020
     Route: 048
  20. CYCLOSPORINE. [Concomitant]
     Active Substance: CYCLOSPORINE
     Dosage: 175 MG, 2X/DAY (EVERY 12 HOURS), MODIFIED 25 MG ORAL CAPSULE
     Route: 048
  21. MAGNESIUM AMINO ACID CHELATE [Concomitant]
     Active Substance: MAGNESIUM
     Dosage: 2 TABLETS, 3X/DAY
     Route: 048

REACTIONS (2)
  - Myelodysplastic syndrome [Not Recovered/Not Resolved]
  - Second primary malignancy [Not Recovered/Not Resolved]

NARRATIVE: CASE EVENT DATE: 20200427
